FAERS Safety Report 8123037-8 (Version None)
Quarter: 2012Q1

REPORT INFORMATION
  Report Type: 
  Country: None (occurrence: None)
  Receive Date: 20120208
  Receipt Date: 20120127
  Transmission Date: 20120608
  Serious: Yes (Other)
  Sender: FDA-Public Use
  Company Number: CHPA2012US000933

PATIENT

DRUGS (3)
  1. VITAMINS NOS [Concomitant]
     Dosage: UNK
     Route: 048
  2. EXCEDRIN EXTRA STRENGTH TABLETS [Suspect]
     Indication: PAIN
     Dosage: UNK, Q4H
     Route: 048
     Dates: start: 20111101, end: 20120101
  3. DRUG THERAPY NOS [Concomitant]
     Indication: THYROID DISORDER
     Dosage: UNK
     Route: 048

REACTIONS (7)
  - ASTHENIA [None]
  - DYSPNOEA [None]
  - HAEMOGLOBIN DECREASED [None]
  - INCORRECT DRUG ADMINISTRATION DURATION [None]
  - TACHYCARDIA [None]
  - FATIGUE [None]
  - PALPITATIONS [None]
